FAERS Safety Report 8004840-1 (Version None)
Quarter: 2011Q4

REPORT INFORMATION
  Report Type: 
  Country: None (occurrence: None)
  Receive Date: 20111223
  Receipt Date: 20111213
  Transmission Date: 20120403
  Serious: Yes (Hospitalization, Other)
  Sender: FDA-Public Use
  Company Number: IT-RANBAXY-2011RR-51071

PATIENT
  Age: 40 Year
  Sex: Male
  Weight: 69.5 kg

DRUGS (4)
  1. LITHIUM [Suspect]
     Indication: SCHIZOAFFECTIVE DISORDER BIPOLAR TYPE
     Dosage: 300 MG, TID
  2. RISPERIDONE [Suspect]
     Indication: SCHIZOAFFECTIVE DISORDER BIPOLAR TYPE
     Dosage: 2 MG AT BEDTIME
     Route: 065
  3. HALOPERIDOL DECANOATE [Concomitant]
     Indication: SCHIZOAFFECTIVE DISORDER BIPOLAR TYPE
     Dosage: 150 MG EVERY 3 WEEKS
     Route: 030
  4. CLOZAPINE [Suspect]
     Indication: SCHIZOAFFECTIVE DISORDER BIPOLAR TYPE
     Dosage: TITRATED UP TO 100 MG IN THE MORNING AND 175 MG AT BEDTIME
     Route: 065

REACTIONS (6)
  - TACHYCARDIA [None]
  - PANCREATITIS [None]
  - CHOLELITHIASIS [None]
  - DRUG INTERACTION [None]
  - SALIVARY HYPERSECRETION [None]
  - CONSTIPATION [None]
